FAERS Safety Report 16856485 (Version 3)
Quarter: 2019Q4

REPORT INFORMATION
  Report Type: Spontaneous
  Country: CA (occurrence: CA)
  Receive Date: 20190926
  Receipt Date: 20191125
  Transmission Date: 20200122
  Serious: Yes (Other)
  Sender: FDA-Public Use
  Company Number: CA-PFIZER INC-2019357013

PATIENT
  Age: 26 Year
  Sex: Female
  Weight: 45 kg

DRUGS (1)
  1. XELJANZ [Suspect]
     Active Substance: TOFACITINIB CITRATE
     Indication: COLITIS ULCERATIVE
     Dosage: 10 MG, 2X/DAY
     Route: 048
     Dates: start: 20190809

REACTIONS (4)
  - Rectal haemorrhage [Recovering/Resolving]
  - Abdominal pain [Unknown]
  - Flatulence [Unknown]
  - Dry mouth [Unknown]

NARRATIVE: CASE EVENT DATE: 2019
